FAERS Safety Report 7217589-X (Version None)
Quarter: 2011Q1

REPORT INFORMATION
  Report Type: 
  Country: None (occurrence: None)
  Receive Date: 20110110
  Receipt Date: 20101231
  Transmission Date: 20110831
  Serious: Yes (Death)
  Sender: FDA-Public Use
  Company Number: US-PFIZER INC-2011003033

PATIENT
  Age: 71 Year
  Sex: Male

DRUGS (7)
  1. DIAZEPAM [Suspect]
     Route: 048
  2. ACETAMINOPHEN AND HYDROCODONE BITARTRATE [Suspect]
     Route: 048
  3. PREDNISONE [Suspect]
     Route: 048
  4. PROPOXYPHENE [Suspect]
     Route: 048
  5. IBUPROFEN [Suspect]
     Route: 048
  6. HYDROXYCHLOROQUINE [Suspect]
     Route: 048
  7. TEMAZEPAM [Suspect]

REACTIONS (1)
  - COMPLETED SUICIDE [None]
